FAERS Safety Report 5571560-2 (Version None)
Quarter: 2007Q4

REPORT INFORMATION
  Report Type: 
  Country: None (occurrence: None)
  Receive Date: 20071221
  Receipt Date: 20071211
  Transmission Date: 20080405
  Serious: Yes (Other)
  Sender: FDA-Public Use
  Company Number: CH-ELI_LILLY_AND_COMPANY-CH200712003488

PATIENT
  Age: 65 Year
  Sex: Female

DRUGS (6)
  1. CYMBALTA [Suspect]
     Indication: DEPRESSION
     Dosage: 60 MG, UNK
     Route: 048
     Dates: start: 20070401, end: 20071213
  2. CYMBALTA [Suspect]
     Dosage: 30 MG, DAILY (1/D)
     Route: 048
     Dates: start: 20071213
  3. SEROQUEL [Concomitant]
     Indication: PSYCHOTIC DISORDER
     Dosage: 100 MG, DAILY (1/D)
     Route: 048
     Dates: start: 20070401, end: 20071213
  4. SEROQUEL [Concomitant]
     Dosage: 300 MG, DAILY (1/D)
     Route: 048
     Dates: start: 20071214
  5. LEXOTANIL [Concomitant]
     Indication: ANXIETY
     Dosage: 3 MG, AS NEEDED
     Route: 048
  6. ANTIHYPERTENSIVES [Concomitant]
     Indication: HYPERTENSION
     Dosage: UNK, UNKNOWN
     Route: 065

REACTIONS (5)
  - DYSPHORIA [None]
  - IRRITABILITY [None]
  - PSYCHOMOTOR HYPERACTIVITY [None]
  - SUSPICIOUSNESS [None]
  - WEIGHT DECREASED [None]
